FAERS Safety Report 11266242 (Version 4)
Quarter: 2015Q3

REPORT INFORMATION
  Report Type: Report from Study
  Country: BR (occurrence: BR)
  Receive Date: 20150713
  Receipt Date: 20150923
  Transmission Date: 20151125
  Serious: Yes (Hospitalization)
  Sender: FDA-Public Use
  Company Number: BR-SA-2015SA081216

PATIENT
  Age: 49 Year
  Sex: Male
  Weight: 146 kg

DRUGS (6)
  1. LOSARTAN. [Concomitant]
     Active Substance: LOSARTAN
     Indication: BLOOD PRESSURE MEASUREMENT
     Dosage: SINCE APPROXIMATELY 3 YEARS
     Route: 048
     Dates: start: 2012
  2. LANTUS SOLOSTAR [Suspect]
     Active Substance: INSULIN GLARGINE
     Indication: TYPE 2 DIABETES MELLITUS
     Route: 058
     Dates: start: 2013
  3. APIDRA SOLOSTAR [Suspect]
     Active Substance: INSULIN GLULISINE
     Indication: TYPE 2 DIABETES MELLITUS
     Dosage: (8 IU BEFORE BREAKFAST, LUNCH AND DINNER)
     Route: 058
     Dates: start: 2013
  4. SOLOSTAR [Concomitant]
     Active Substance: DEVICE
     Indication: TYPE 2 DIABETES MELLITUS
     Dates: start: 2013
  5. APIDRA SOLOSTAR [Suspect]
     Active Substance: INSULIN GLULISINE
     Indication: TYPE 2 DIABETES MELLITUS
     Route: 065
  6. SOLOSTAR [Concomitant]
     Active Substance: DEVICE
     Dates: start: 2013

REACTIONS (11)
  - Localised infection [Unknown]
  - Syncope [Unknown]
  - Pain in extremity [Unknown]
  - Injury [Unknown]
  - Wound [Recovering/Resolving]
  - Blister [Recovering/Resolving]
  - Myopia [Not Recovered/Not Resolved]
  - Bacterial infection [Recovering/Resolving]
  - Hypoglycaemia [Recovered/Resolved]
  - Oedema peripheral [Recovering/Resolving]
  - Hyperglycaemia [Recovering/Resolving]

NARRATIVE: CASE EVENT DATE: 201508
